FAERS Safety Report 6124663-8 (Version None)
Quarter: 2009Q1

REPORT INFORMATION
  Report Type: 
  Country: None (occurrence: None)
  Receive Date: 20090319
  Receipt Date: 20090319
  Transmission Date: 20090719
  Serious: Yes (Death)
  Sender: FDA-Public Use
  Company Number: US-PFIZER INC-2008155962

PATIENT
  Sex: Male
  Weight: 88.435 kg

DRUGS (5)
  1. LIPITOR [Suspect]
     Indication: BLOOD CHOLESTEROL INCREASED
     Dosage: 80MG
  2. GLIPIZIDE [Concomitant]
  3. METFORMIN HYDROCHLORIDE [Concomitant]
  4. ACTOS [Concomitant]
  5. ZETIA [Concomitant]

REACTIONS (3)
  - HIGH DENSITY LIPOPROTEIN DECREASED [None]
  - LOW DENSITY LIPOPROTEIN INCREASED [None]
  - MYOCARDIAL INFARCTION [None]
